FAERS Safety Report 5958336-9 (Version None)
Quarter: 2008Q4

REPORT INFORMATION
  Report Type: 
  Country: None (occurrence: None)
  Receive Date: 20081114
  Receipt Date: 20081110
  Transmission Date: 20090506
  Serious: Yes (Life-Threatening, Disabling, Other)
  Sender: FDA-Public Use
  Company Number: AE-2008-013

PATIENT
  Age: 71 Year
  Sex: Male

DRUGS (3)
  1. METOCLOPRAMIDE [Suspect]
     Dosage: 10MG, TID, ORAL
     Route: 048
  2. CARBIDOPA AND LEVODOPA [Concomitant]
  3. TRIHEXYPHENIDYL [Concomitant]

REACTIONS (8)
  - AGGRESSION [None]
  - AGITATION [None]
  - APATHY [None]
  - COGNITIVE DISORDER [None]
  - CONDITION AGGRAVATED [None]
  - ENCEPHALOPATHY [None]
  - PARKINSONISM [None]
  - PERSONALITY CHANGE [None]
